FAERS Safety Report 8489540-6 (Version None)
Quarter: 2012Q3

REPORT INFORMATION
  Report Type: 
  Country: None (occurrence: None)
  Receive Date: 20120705
  Receipt Date: 20120625
  Transmission Date: 20120928
  Serious: Yes (Hospitalization, Other)
  Sender: FDA-Public Use
  Company Number: US-BAYER-2012-062989

PATIENT
  Age: 49 Year
  Sex: Male
  Weight: 70.748 kg

DRUGS (7)
  1. ALDACTONE [Concomitant]
     Dosage: 100 MG, QD
  2. METFORMIN HCL [Concomitant]
     Dosage: 500 MG, HS
  3. SORAFENIB (RAF KINASE INHIBITOR) [Suspect]
     Dosage: 400 MG, BID
     Route: 048
     Dates: start: 20110126, end: 20110713
  4. LASIX [Concomitant]
     Dosage: 40 MG, QD
  5. SORAFENIB (RAF KINASE INHIBITOR) [Suspect]
     Indication: HEPATIC NEOPLASM MALIGNANT
     Dosage: 400 MG, BID
     Route: 048
     Dates: start: 20110803, end: 20120615
  6. NADOLOL [Concomitant]
     Dosage: 20 MG, QD
  7. BARACLUDE [Concomitant]
     Dosage: 1 MG, QD

REACTIONS (11)
  - DECREASED APPETITE [None]
  - TINNITUS [None]
  - HEPATIC ENCEPHALOPATHY [None]
  - SPLENIC VARICES [None]
  - PORTAL HYPERTENSIVE ENTEROPATHY [None]
  - DIARRHOEA [None]
  - ALOPECIA [None]
  - ASCITES [None]
  - FATIGUE [None]
  - VARICES OESOPHAGEAL [None]
  - GASTRIC VARICES [None]
